FAERS Safety Report 12372248 (Version 1)
Quarter: 2016Q2

REPORT INFORMATION
  Report Type: Spontaneous
  Country: US (occurrence: US)
  Receive Date: 20160516
  Receipt Date: 20160516
  Transmission Date: 20160815
  Serious: No
  Sender: FDA-Public Use
  Company Number: US-ACTELION-A-US2016-134693

PATIENT
  Age: 68 Year
  Sex: Female

DRUGS (17)
  1. OPSUMIT [Suspect]
     Active Substance: MACITENTAN
     Indication: PULMONARY ARTERIAL HYPERTENSION
     Dosage: 10 MG, QD
     Route: 048
  2. RIOCIGUAT [Suspect]
     Active Substance: RIOCIGUAT
     Dosage: 0.5 MG, TID
     Route: 065
     Dates: end: 20160427
  3. SIMVASTATIN. [Concomitant]
     Active Substance: SIMVASTATIN
  4. METOPROLOL SUCCINATE. [Concomitant]
     Active Substance: METOPROLOL SUCCINATE
  5. COREG [Concomitant]
     Active Substance: CARVEDILOL
  6. ASPIRIN. [Concomitant]
     Active Substance: ASPIRIN
  7. ZAROXOLYN [Concomitant]
     Active Substance: METOLAZONE
  8. CALCIUM [Concomitant]
     Active Substance: CALCIUM
  9. BONIVA [Concomitant]
     Active Substance: IBANDRONATE SODIUM
  10. ALLOPURINOL. [Concomitant]
     Active Substance: ALLOPURINOL
  11. PLAVIX [Concomitant]
     Active Substance: CLOPIDOGREL BISULFATE
  12. VITAMIN D [Concomitant]
     Active Substance: CHOLECALCIFEROL
  13. NEXIUM [Concomitant]
     Active Substance: ESOMEPRAZOLE MAGNESIUM
  14. RIOCIGUAT [Suspect]
     Active Substance: RIOCIGUAT
     Indication: PRODUCT USED FOR UNKNOWN INDICATION
     Dosage: 1 MG, TID
     Route: 065
  15. ALBUTEROL. [Concomitant]
     Active Substance: ALBUTEROL
  16. METFORMIN [Concomitant]
     Active Substance: METFORMIN HYDROCHLORIDE
  17. ALLEGRA [Concomitant]
     Active Substance: FEXOFENADINE HYDROCHLORIDE

REACTIONS (5)
  - Dyspnoea [Not Recovered/Not Resolved]
  - Epistaxis [Recovered/Resolved]
  - Hypotension [Recovering/Resolving]
  - Fluid retention [Not Recovered/Not Resolved]
  - Fatigue [Not Recovered/Not Resolved]

NARRATIVE: CASE EVENT DATE: 20160404
